FAERS Safety Report 9687068 (Version 1)
Quarter: 2013Q4

REPORT INFORMATION
  Report Type: Spontaneous
  Country: US (occurrence: US)
  Receive Date: 20131113
  Receipt Date: 20131113
  Transmission Date: 20140711
  Serious: Yes (Other)
  Sender: FDA-Public Use
  Company Number: US-FRI-1000050833

PATIENT
  Age: 50 Year
  Sex: Female

DRUGS (26)
  1. TEFLARO [Suspect]
     Indication: STAPHYLOCOCCAL INFECTION
     Dosage: 600MG
     Route: 042
     Dates: start: 20130905, end: 2013
  2. TEFLARO [Suspect]
     Indication: STAPHYLOCOCCAL INFECTION
     Dosage: 1200MG
     Route: 042
     Dates: start: 2013, end: 2013
  3. TEFLARO [Suspect]
     Dosage: 600MG
     Route: 042
     Dates: start: 2013, end: 2013
  4. TEFLARO [Suspect]
     Dosage: 800MG
     Route: 042
     Dates: start: 20131105
  5. LASIX [Suspect]
     Dosage: 240MG
  6. LASIX [Suspect]
     Dosage: 80MG
  7. HYDROCHLOROTHIAZIDE [Concomitant]
  8. PHENERGAN [Concomitant]
  9. DILAUDID [Concomitant]
  10. FENTANYL [Concomitant]
     Route: 062
  11. XARELTO [Concomitant]
  12. SERTRALINE [Concomitant]
  13. CULTURELLE [Concomitant]
  14. CLONIDINE [Concomitant]
  15. ALBUTEROL [Concomitant]
  16. OMEPRAZOLE [Concomitant]
  17. NITROSTAT [Concomitant]
  18. PEPCID [Concomitant]
  19. XANAX [Concomitant]
  20. SEROQUEL [Concomitant]
  21. AMLODIPINE [Concomitant]
  22. SOMA [Concomitant]
  23. COREG [Concomitant]
  24. MIRTAZAPINE [Concomitant]
  25. MINOXIDIL [Concomitant]
  26. MECLOZINE [Concomitant]

REACTIONS (2)
  - Renal failure acute [Recovering/Resolving]
  - Anaemia [Recovering/Resolving]
